FAERS Safety Report 5903694-4 (Version None)
Quarter: 2008Q3

REPORT INFORMATION
  Report Type: 
  Country: None (occurrence: None)
  Receive Date: 20080930
  Receipt Date: 20080929
  Transmission Date: 20090109
  Serious: Yes (Death)
  Sender: FDA-Public Use
  Company Number: IN-B.I. PHARMACEUTICALS,INC./RIDGEFIELD-2008-SG-00037SG

PATIENT
  Age: 61 Year
  Sex: Male

DRUGS (1)
  1. AGGRENOX [Suspect]
     Indication: CEREBROVASCULAR ACCIDENT PROPHYLAXIS
     Dosage: AGGRENOX/ASPIRIN 25MG+ER DIPYRIDAMOLE200MG, BID
     Route: 048
     Dates: start: 20080305, end: 20080609

REACTIONS (1)
  - DEATH [None]
